FAERS Safety Report 4429277-3 (Version None)
Quarter: 2004Q3

REPORT INFORMATION
  Report Type: 
  Country: None (occurrence: None)
  Receive Date: 20040818
  Receipt Date: 20040818
  Transmission Date: 20050211
  Serious: No
  Sender: FDA-Public Use
  Company Number: None

PATIENT
  Age: 50 Year
  Sex: Female
  Weight: 48.9885 kg

DRUGS (1)
  1. ENBREL [Suspect]
     Indication: RHEUMATOID ARTHRITIS
     Dosage: ENBREL 25 MG 2XWEE
     Dates: start: 20040627, end: 20040803

REACTIONS (9)
  - ARTHRALGIA [None]
  - BRONCHITIS [None]
  - BURSITIS [None]
  - CHEST PAIN [None]
  - CONDITION AGGRAVATED [None]
  - COUGH [None]
  - MYALGIA [None]
  - RESPIRATORY DISORDER [None]
  - SINUS PAIN [None]
